FAERS Safety Report 11990607 (Version 1)
Quarter: 2016Q1

REPORT INFORMATION
  Report Type: Spontaneous
  Country: ES (occurrence: ES)
  Receive Date: 20160202
  Receipt Date: 20160202
  Transmission Date: 20160526
  Serious: Yes (Other)
  Sender: FDA-Public Use
  Company Number: ES-NOVAST LABORATORIES, LTD-ES-2016NOV000004

PATIENT
  Age: 35 Year
  Sex: Female

DRUGS (1)
  1. DROSPIRENONE\ETHINYL ESTRADIOL [Suspect]
     Active Substance: DROSPIRENONE\ETHINYL ESTRADIOL
     Indication: SECONDARY HYPOGONADISM

REACTIONS (5)
  - Skin erosion [Recovered/Resolved]
  - Hypertransaminasaemia [Recovered/Resolved]
  - Blister [Recovered/Resolved]
  - Hair growth abnormal [Unknown]
  - Porphyria non-acute [Recovered/Resolved]
